FAERS Safety Report 4884640-1 (Version None)
Quarter: 2006Q1

REPORT INFORMATION
  Report Type: 
  Country: None (occurrence: None)
  Receive Date: 20060119
  Receipt Date: 20060109
  Transmission Date: 20060701
  Serious: Yes (Life-Threatening)
  Sender: FDA-Public Use
  Company Number: AU-ABBOTT-06P-008-0322363-00

PATIENT
  Sex: Male

DRUGS (13)
  1. DILAUDID [Suspect]
     Indication: PAIN
  2. CITALOPRAM HYDROBROMIDE [Suspect]
     Indication: DEPRESSION
     Route: 048
     Dates: start: 20050208, end: 20050217
  3. KETAMINE HCL [Suspect]
     Indication: PAIN
  4. HALOPERIDOL [Suspect]
     Indication: PAIN
  5. AMLODIPINE [Concomitant]
     Indication: ESSENTIAL HYPERTENSION
  6. PRAZOSIN HCL [Concomitant]
     Indication: ESSENTIAL HYPERTENSION
  7. CELECOXIB [Concomitant]
     Indication: PAIN
  8. TEMAZEPAM [Concomitant]
     Indication: SLEEP DISORDER
  9. PARACETAMOL [Concomitant]
     Indication: PAIN
  10. GABAPENTIN [Concomitant]
     Indication: PAIN
  11. CIPROFLOXACIN [Concomitant]
     Indication: DRUG USE FOR UNKNOWN INDICATION
  12. DEXAMETHASONE TAB [Concomitant]
     Indication: PAIN
  13. MOXIFLOXACIN HCL [Concomitant]
     Indication: LUNG DISORDER

REACTIONS (6)
  - AGITATION [None]
  - CONFUSIONAL STATE [None]
  - HYPERREFLEXIA [None]
  - MYOCLONUS [None]
  - NYSTAGMUS [None]
  - SEROTONIN SYNDROME [None]
